FAERS Safety Report 13245580 (Version 1)
Quarter: 2017Q1

REPORT INFORMATION
  Report Type: Spontaneous
  Country: FR (occurrence: FR)
  Receive Date: 20170217
  Receipt Date: 20170217
  Transmission Date: 20170428
  Serious: Yes (Other)
  Sender: FDA-Public Use
  Company Number: FR-BIOGEN-2017BI00358389

PATIENT
  Age: 36 Year
  Sex: Female
  Weight: 133 kg

DRUGS (1)
  1. TECFIDERA [Suspect]
     Active Substance: DIMETHYL FUMARATE
     Indication: MULTIPLE SCLEROSIS
     Dosage: MAINTENANCE DOSE
     Route: 065
     Dates: start: 201409

REACTIONS (2)
  - Gastrectomy [Unknown]
  - Weight increased [Unknown]

NARRATIVE: CASE EVENT DATE: 201409
